FAERS Safety Report 5163947-7 (Version None)
Quarter: 2006Q4

REPORT INFORMATION
  Report Type: 
  Country: None (occurrence: None)
  Receive Date: 20061124
  Receipt Date: 20061110
  Transmission Date: 20070319
  Serious: Yes (Other)
  Sender: FDA-Public Use
  Company Number: 2006114221

PATIENT
  Sex: Female
  Weight: 93.8946 kg

DRUGS (6)
  1. GEODON [Suspect]
     Indication: SCHIZOAFFECTIVE DISORDER
     Dosage: 160 MG (80 MG, 2 IN 1 D), ORAL
     Route: 048
     Dates: start: 20050601, end: 20061012
  2. GEODON [Suspect]
     Indication: SCHIZOPHRENIA
     Dosage: 160 MG (80 MG, 2 IN 1 D), ORAL
     Route: 048
     Dates: start: 20050601, end: 20061012
  3. NAVANE [Suspect]
  4. ABILIFY [Suspect]
     Dates: start: 20060901, end: 20060101
  5. AMBIEN [Concomitant]
  6. ORAL CONTRACEPTIVE NOS (ORAL CONTRACEPTIVE NOS) [Concomitant]

REACTIONS (5)
  - CARDIAC DISORDER [None]
  - CHEST PAIN [None]
  - DRUG DEPENDENCE [None]
  - DYSPNOEA [None]
  - LOSS OF CONSCIOUSNESS [None]
